FAERS Safety Report 11375753 (Version 2)
Quarter: 2015Q3

REPORT INFORMATION
  Report Type: Spontaneous
  Country: JP (occurrence: JP)
  Receive Date: 20150813
  Receipt Date: 20150904
  Transmission Date: 20151125
  Serious: Yes (Hospitalization, Other)
  Sender: FDA-Public Use
  Company Number: JP-GLAXOSMITHKLINE-JP2015JPN114423

PATIENT
  Age: 0 Day
  Sex: Male
  Weight: 1.03 kg

DRUGS (2)
  1. LAMICTAL [Suspect]
     Active Substance: LAMOTRIGINE
     Indication: EPILEPSY
     Dosage: 50 MG, 1D
     Route: 064
     Dates: start: 20120116, end: 20140129
  2. TEGRETOL [Concomitant]
     Active Substance: CARBAMAZEPINE
     Indication: EPILEPSY
     Dosage: 150 MG, 1D
     Dates: start: 20130513, end: 20130819

REACTIONS (27)
  - Neonatal asphyxia [Recovering/Resolving]
  - Cellulitis [Recovering/Resolving]
  - Retinopathy of prematurity [Unknown]
  - Tricuspid valve incompetence [Unknown]
  - Patent ductus arteriosus [Recovered/Resolved]
  - Cerebral haemorrhage [Recovering/Resolving]
  - Staphylococcal infection [Recovering/Resolving]
  - Catheter site swelling [Recovering/Resolving]
  - Chest X-ray abnormal [Unknown]
  - Catheter site infection [Recovering/Resolving]
  - Anaemia neonatal [Not Recovered/Not Resolved]
  - Foetal exposure during pregnancy [Unknown]
  - Neonatal hypoxia [Recovering/Resolving]
  - Osteopenia [Unknown]
  - Sepsis [Recovering/Resolving]
  - Low birth weight baby [Recovering/Resolving]
  - Fever neonatal [Recovering/Resolving]
  - Hyperbilirubinaemia neonatal [Unknown]
  - Blood alkaline phosphatase increased [Recovering/Resolving]
  - Intraventricular haemorrhage neonatal [Recovering/Resolving]
  - Arthropathy [Unknown]
  - Neonatal respiratory distress syndrome [Recovering/Resolving]
  - Bradycardia neonatal [Recovering/Resolving]
  - Bronchopulmonary dysplasia [Recovering/Resolving]
  - Inflammation [Recovering/Resolving]
  - Catheter site erythema [Recovering/Resolving]
  - Catheter site induration [Recovering/Resolving]

NARRATIVE: CASE EVENT DATE: 20140129
